FAERS Safety Report 6104845-1 (Version None)
Quarter: 2009Q1

REPORT INFORMATION
  Report Type: 
  Country: None (occurrence: None)
  Receive Date: 20090306
  Receipt Date: 20090302
  Transmission Date: 20090719
  Serious: Yes (Hospitalization, Other)
  Sender: FDA-Public Use
  Company Number: ES-JNJFOC-20080600468

PATIENT
  Age: 17 Year
  Sex: Male

DRUGS (5)
  1. CONCERTA [Suspect]
     Route: 048
  2. CONCERTA [Suspect]
     Route: 048
  3. CONCERTA [Suspect]
     Route: 048
  4. CONCERTA [Suspect]
     Indication: ATTENTION DEFICIT/HYPERACTIVITY DISORDER
     Route: 048
  5. AKINETON [Concomitant]
     Indication: DRUG USE FOR UNKNOWN INDICATION
     Route: 065

REACTIONS (6)
  - AGITATION [None]
  - ANXIETY [None]
  - DYSTONIA [None]
  - MYDRIASIS [None]
  - PALPITATIONS [None]
  - VOMITING [None]
